FAERS Safety Report 7851578-7 (Version None)
Quarter: 2011Q3

REPORT INFORMATION
  Report Type: 
  Country: None (occurrence: None)
  Receive Date: 20110909
  Receipt Date: 20110810
  Transmission Date: 20111222
  Serious: No
  Sender: FDA-Public Use
  Company Number: 2011SP037975

PATIENT
  Sex: Female

DRUGS (3)
  1. RIBAVIRIN [Suspect]
     Indication: PRODUCT USED FOR UNKNOWN INDICATION
  2. PEG-INTRON [Suspect]
     Indication: PRODUCT USED FOR UNKNOWN INDICATION
  3. VICTRELIS [Suspect]
     Indication: HEPATITIS C
     Dosage: PO
     Route: 048

REACTIONS (2)
  - ANAEMIA [None]
  - UNDERDOSE [None]
